FAERS Safety Report 8267478-7 (Version None)
Quarter: 2012Q2

REPORT INFORMATION
  Report Type: 
  Country: None (occurrence: None)
  Receive Date: 20120409
  Receipt Date: 20120405
  Transmission Date: 20120825
  Serious: Yes (Death, Other)
  Sender: FDA-Public Use
  Company Number: PHHY2012MX025789

PATIENT
  Sex: Male

DRUGS (2)
  1. GLEEVEC [Suspect]
     Indication: CHRONIC MYELOID LEUKAEMIA
     Dosage: 400 MG DAILY
     Route: 048
     Dates: start: 20111215
  2. GLEEVEC [Suspect]
     Dosage: 600 MG DAILY
     Route: 048

REACTIONS (6)
  - PLATELET COUNT DECREASED [None]
  - HAEMOGLOBIN DECREASED [None]
  - DEATH [None]
  - CHRONIC MYELOID LEUKAEMIA [None]
  - PYREXIA [None]
  - GENERAL PHYSICAL CONDITION ABNORMAL [None]
